FAERS Safety Report 5802510-9 (Version None)
Quarter: 2008Q2

REPORT INFORMATION
  Report Type: 
  Country: None (occurrence: None)
  Receive Date: 20080626
  Receipt Date: 20070912
  Transmission Date: 20081010
  Serious: Yes (Other)
  Sender: FDA-Public Use
  Company Number: 40778

PATIENT
  Age: 50 Year
  Sex: Male

DRUGS (2)
  1. ADENOSINE [Suspect]
     Indication: TACHYCARDIA
     Dosage: 6MG BOLUS - 12MG 2 MINUTES AFTER B
     Dates: start: 20070912
  2. ADENOSINE [Suspect]
     Indication: TACHYCARDIA
     Dosage: 6ML
     Dates: start: 20070912

REACTIONS (1)
  - DRUG INEFFECTIVE [None]
